FAERS Safety Report 5016830-1 (Version None)
Quarter: 2006Q2

REPORT INFORMATION
  Report Type: 
  Country: None (occurrence: None)
  Receive Date: 20060602
  Receipt Date: 20060525
  Transmission Date: 20061013
  Serious: Yes (Hospitalization)
  Sender: FDA-Public Use
  Company Number: 2006UW10373

PATIENT
  Age: 57 Year
  Sex: Female
  Weight: 67 kg

DRUGS (4)
  1. TAMOXIFEN [Suspect]
     Indication: METASTASES TO BONE
     Route: 048
     Dates: start: 20050220, end: 20050226
  2. DECADRON SRC [Concomitant]
     Indication: OEDEMA
  3. EUTHYROX [Concomitant]
     Indication: THYROID DISORDER
     Route: 048
  4. MAREVAN [Concomitant]
     Dosage: 5 MG TWICE/WEEK, 2.5 MG 5 TIMES/WEEK
     Route: 048

REACTIONS (3)
  - DYSPNOEA [None]
  - TACHYCARDIA [None]
  - THROMBOSIS [None]
